FAERS Safety Report 5597053-4 (Version None)
Quarter: 2007Q4

REPORT INFORMATION
  Report Type: 
  Country: None (occurrence: None)
  Receive Date: 20071221
  Receipt Date: 20071119
  Transmission Date: 20080405
  Serious: No
  Sender: FDA-Public Use
  Company Number: SPV1-2007-04982

PATIENT
  Age: 7 Year
  Sex: Male

DRUGS (4)
  1. VYVANSE [Suspect]
     Dosage: 30 MG, 1X/DAY:QD, ORAL ; 15 MG, 1X/DAY:QD, ORAL
     Route: 048
     Dates: start: 20070924, end: 20071001
  2. VYVANSE [Suspect]
     Dosage: 30 MG, 1X/DAY:QD, ORAL ; 15 MG, 1X/DAY:QD, ORAL
     Route: 048
     Dates: start: 20071001, end: 20071001
  3. CLARITIN /00413701/ [Concomitant]
  4. GLICLAZIDE [Concomitant]

REACTIONS (5)
  - DRUG EFFECT DECREASED [None]
  - LOGORRHOEA [None]
  - OBSESSIVE-COMPULSIVE DISORDER [None]
  - OFF LABEL USE [None]
  - WRONG TECHNIQUE IN DRUG USAGE PROCESS [None]
